FAERS Safety Report 9247461 (Version 1)
Quarter: 2013Q2

REPORT INFORMATION
  Report Type: Spontaneous
  Country: ZA (occurrence: ZA)
  Receive Date: 20130423
  Receipt Date: 20130423
  Transmission Date: 20140414
  Serious: Yes (Death)
  Sender: FDA-Public Use
  Company Number: ZA-JNJFOC-20130409442

PATIENT
  Age: 42 Year
  Sex: Male

DRUGS (2)
  1. RISPERDAL CONSTA [Suspect]
     Indication: SCHIZOPHRENIA
     Route: 030
  2. CLOZAPINE [Concomitant]
     Route: 065

REACTIONS (3)
  - Sudden death [Fatal]
  - Blood glucose increased [Fatal]
  - Dry skin [Fatal]
